FAERS Safety Report 16943248 (Version 5)
Quarter: 2020Q2

REPORT INFORMATION
  Report Type: Report from Study
  Country: US (occurrence: US)
  Receive Date: 20191021
  Receipt Date: 20200401
  Transmission Date: 20200713
  Serious: Yes (Other)
  Sender: FDA-Public Use
  Company Number: NVSC2019US002017

PATIENT

DRUGS (1)
  1. COSENTYX [Suspect]
     Active Substance: SECUKINUMAB
     Indication: PSORIASIS
     Dosage: 150 MG, QMO (BATCH NUMBER WAS NOT REPORTED)
     Route: 058
     Dates: start: 20190111

REACTIONS (2)
  - Colitis [Unknown]
  - Gastrointestinal inflammation [Unknown]
